FAERS Safety Report 7769571-1 (Version None)
Quarter: 2011Q3

REPORT INFORMATION
  Report Type: 
  Country: None (occurrence: None)
  Receive Date: 20110922
  Receipt Date: 20110328
  Transmission Date: 20111222
  Serious: No
  Sender: FDA-Public Use
  Company Number: US-ASTRAZENECA-2011SE17439

PATIENT
  Age: 3974 Day
  Sex: Female

DRUGS (11)
  1. PAXIL [Concomitant]
     Dates: start: 20020508
  2. CRANTEX LA [Concomitant]
     Dosage: 600 - 30 MG
     Dates: start: 20021209
  3. PAXIL [Concomitant]
     Dates: start: 20020321
  4. AMANTADINE HCL [Concomitant]
     Dates: start: 20021008
  5. SEROQUEL [Suspect]
     Route: 048
     Dates: start: 20020522
  6. PAXIL [Concomitant]
     Dates: start: 20020414
  7. ZYRTEC [Concomitant]
     Dates: start: 20020108
  8. RISPERDAL [Concomitant]
     Dates: start: 20020821
  9. ZITHROMAX [Concomitant]
     Dates: start: 20021212
  10. ZYRTEC [Concomitant]
     Dates: start: 20020508
  11. AUGMENTIN XR [Concomitant]
     Dates: start: 20021105

REACTIONS (5)
  - GLUCOSE TOLERANCE IMPAIRED [None]
  - POLYCYSTIC OVARIES [None]
  - BLOOD TESTOSTERONE INCREASED [None]
  - WEIGHT INCREASED [None]
  - INSULIN RESISTANCE [None]
